FAERS Safety Report 16416748 (Version 1)
Quarter: 2019Q2

REPORT INFORMATION
  Report Type: Spontaneous
  Country: US (occurrence: US)
  Receive Date: 20190611
  Receipt Date: 20190611
  Transmission Date: 20190711
  Serious: Yes (Other)
  Sender: FDA-Public Use
  Company Number: US-GILEAD-2019-0412032

PATIENT
  Age: 62 Year
  Sex: Female
  Weight: 50.5 kg

DRUGS (1)
  1. YESCARTA [Suspect]
     Active Substance: AXICABTAGENE CILOLEUCEL
     Indication: DIFFUSE LARGE B-CELL LYMPHOMA
     Dosage: UNK, ONCE
     Route: 042
     Dates: start: 20190326, end: 20190326

REACTIONS (4)
  - Cytokine release syndrome [Unknown]
  - Pyrexia [Unknown]
  - Neurotoxicity [Unknown]
  - CAR T-cell-related encephalopathy syndrome [Unknown]

NARRATIVE: CASE EVENT DATE: 20190331
